FAERS Safety Report 15215116 (Version 1)
Quarter: 2018Q3

REPORT INFORMATION
  Report Type: Spontaneous
  Country: US (occurrence: US)
  Receive Date: 20180730
  Receipt Date: 20180730
  Transmission Date: 20181010
  Serious: No
  Sender: FDA-Public Use
  Company Number: US-DEPOMED, INC.-US-2017DEP001429

PATIENT

DRUGS (2)
  1. LAZANDA [Suspect]
     Active Substance: FENTANYL CITRATE
     Indication: CANCER PAIN
     Dosage: 100 ?G, BID, AS NEEDED
     Route: 045
     Dates: start: 2017
  2. XTAMPZA ER [Concomitant]
     Active Substance: OXYCODONE
     Indication: PAIN
     Dosage: 9 MG, BID
     Dates: start: 201706

REACTIONS (2)
  - Drug ineffective [Not Recovered/Not Resolved]
  - Device issue [Not Recovered/Not Resolved]

NARRATIVE: CASE EVENT DATE: 2017
